FAERS Safety Report 7750378-6 (Version None)
Quarter: 2011Q3

REPORT INFORMATION
  Report Type: 
  Country: None (occurrence: None)
  Receive Date: 20110912
  Receipt Date: 20110901
  Transmission Date: 20111222
  Serious: Yes (Death, Life-Threatening, Disabling)
  Sender: FDA-Public Use
  Company Number: OSCN-NO-0604S-0093

PATIENT
  Age: 47 Year
  Sex: Male

DRUGS (4)
  1. OMNISCAN [Suspect]
     Indication: PRODUCT USED FOR UNKNOWN INDICATION
     Dosage: NR, SINGLE DOSE, 18 ML, SINGLE DOSE,  INTRAVENOUS, NR, SINGLE DOSE, 15 ML, SINGLE DOSE
     Route: 042
     Dates: start: 20030416, end: 20030416
  2. OMNISCAN [Suspect]
     Indication: PRODUCT USED FOR UNKNOWN INDICATION
     Dosage: NR, SINGLE DOSE, 18 ML, SINGLE DOSE,  INTRAVENOUS, NR, SINGLE DOSE, 15 ML, SINGLE DOSE
     Route: 042
     Dates: start: 20041122, end: 20041122
  3. OMNISCAN [Suspect]
     Indication: PRODUCT USED FOR UNKNOWN INDICATION
     Dosage: NR, SINGLE DOSE, 18 ML, SINGLE DOSE,  INTRAVENOUS, NR, SINGLE DOSE, 15 ML, SINGLE DOSE
     Route: 042
     Dates: start: 20050519, end: 20050519
  4. OMNISCAN [Suspect]
     Indication: PRODUCT USED FOR UNKNOWN INDICATION
     Dosage: NR, SINGLE DOSE, 18 ML, SINGLE DOSE,  INTRAVENOUS, NR, SINGLE DOSE, 15 ML, SINGLE DOSE
     Route: 042
     Dates: start: 20040211, end: 20040211

REACTIONS (13)
  - NECK PAIN [None]
  - ANAEMIA [None]
  - INFECTION [None]
  - VISUAL IMPAIRMENT [None]
  - PYREXIA [None]
  - CONFUSIONAL STATE [None]
  - HEADACHE [None]
  - NEPHROGENIC SYSTEMIC FIBROSIS [None]
  - DEHYDRATION [None]
  - MALNUTRITION [None]
  - DISEASE PROGRESSION [None]
  - HEARING IMPAIRED [None]
  - RENAL FAILURE CHRONIC [None]
